FAERS Safety Report 15594458 (Version 2)
Quarter: 2018Q4

REPORT INFORMATION
  Report Type: Report from Study
  Country: CA (occurrence: CA)
  Receive Date: 20181107
  Receipt Date: 20181109
  Transmission Date: 20190205
  Serious: Yes (Hospitalization)
  Sender: FDA-Public Use
  Company Number: CA-EISAI MEDICAL RESEARCH-EC-2018-047345

PATIENT
  Age: 63 Year
  Sex: Female
  Weight: 80.4 kg

DRUGS (10)
  1. LENVATINIB [Suspect]
     Active Substance: LENVATINIB
     Indication: ENDOMETRIAL CANCER
     Route: 048
     Dates: start: 20181017
  2. COLACE [Concomitant]
     Active Substance: DOCUSATE SODIUM
     Dates: start: 20170609
  3. VOLTAREN [Concomitant]
     Active Substance: DICLOFENAC SODIUM
     Dates: start: 20180520
  4. METONIA [Concomitant]
     Active Substance: METOCLOPRAMIDE
     Dates: start: 20181017
  5. MK-3475 [Suspect]
     Active Substance: PEMBROLIZUMAB
     Indication: ENDOMETRIAL CANCER
     Route: 041
     Dates: start: 20181017, end: 20181017
  6. ATIVAN [Concomitant]
     Active Substance: LORAZEPAM
     Dates: start: 20181009
  7. LAX A DAY [Concomitant]
     Dates: start: 20170609
  8. ACETAMINOPHEN. [Concomitant]
     Active Substance: ACETAMINOPHEN
     Dates: start: 20180618
  9. MSIR [Concomitant]
     Active Substance: MORPHINE SULFATE
     Dates: start: 20180801
  10. DEXILANT [Concomitant]
     Active Substance: DEXLANSOPRAZOLE
     Dates: start: 201601

REACTIONS (1)
  - Flank pain [Not Recovered/Not Resolved]

NARRATIVE: CASE EVENT DATE: 20181022
